FAERS Safety Report 21214567 (Version 7)
Quarter: 2023Q1

REPORT INFORMATION
  Report Type: Spontaneous
  Country: CA (occurrence: CA)
  Receive Date: 20220816
  Receipt Date: 20230112
  Transmission Date: 20230418
  Serious: Yes (Other)
  Sender: FDA-Public Use
  Company Number: CA-CELLTRION INC.-2022CA008582

PATIENT

DRUGS (5)
  1. INFLECTRA [Suspect]
     Active Substance: INFLIXIMAB-DYYB
     Indication: Crohn^s disease
     Dosage: 400 MG, EVERY 6 WEEKS
     Route: 042
  2. INFLECTRA [Suspect]
     Active Substance: INFLIXIMAB-DYYB
     Dosage: 400 MG, EVERY 6 WEEKS
     Route: 042
     Dates: start: 20220608, end: 20221011
  3. INFLECTRA [Suspect]
     Active Substance: INFLIXIMAB-DYYB
     Dosage: 600 MG, EVERY 6 WEEKS
     Route: 042
     Dates: start: 20220608
  4. INFLECTRA [Suspect]
     Active Substance: INFLIXIMAB-DYYB
     Dosage: 600 MG, EVERY 6 WEEKS
     Route: 042
     Dates: start: 20220721
  5. INFLECTRA [Suspect]
     Active Substance: INFLIXIMAB-DYYB
     Dosage: 400 MG, EVERY 6 WEEKS
     Route: 042
     Dates: start: 20220830

REACTIONS (12)
  - Haematochezia [Not Recovered/Not Resolved]
  - Drug ineffective [Unknown]
  - Off label use [Unknown]
  - Abdominal pain [Not Recovered/Not Resolved]
  - Condition aggravated [Not Recovered/Not Resolved]
  - Decreased appetite [Not Recovered/Not Resolved]
  - Malaise [Recovering/Resolving]
  - Faeces soft [Recovering/Resolving]
  - Depressed mood [Unknown]
  - Feeding disorder [Not Recovered/Not Resolved]
  - Abdominal distension [Not Recovered/Not Resolved]
  - Illness [Unknown]

NARRATIVE: CASE EVENT DATE: 20220101
